FAERS Safety Report 4786845-7 (Version None)
Quarter: 2005Q3

REPORT INFORMATION
  Report Type: 
  Country: None (occurrence: None)
  Receive Date: 20050930
  Receipt Date: 20050919
  Transmission Date: 20060218
  Serious: Yes (Hospitalization, Disabling)
  Sender: FDA-Public Use
  Company Number: DEWYE788128MAY04

PATIENT
  Age: 50 Year
  Sex: Female

DRUGS (2)
  1. VENLAFAXINE HCL [Suspect]
     Indication: ANXIETY DISORDER
     Dosage: ORAL; 75 MG 1X PER 1 DAY ORAL
     Route: 048
     Dates: start: 20040207, end: 20040207
  2. VENLAFAXINE HCL [Suspect]
     Indication: DEPRESSION
     Dosage: ORAL; 75 MG 1X PER 1 DAY ORAL
     Route: 048
     Dates: start: 20040207, end: 20040207

REACTIONS (6)
  - ACCOMMODATION DISORDER [None]
  - ANGLE CLOSURE GLAUCOMA [None]
  - BLINDNESS [None]
  - EYE PAIN [None]
  - POST PROCEDURAL COMPLICATION [None]
  - VISUAL ACUITY REDUCED [None]
